FAERS Safety Report 6547970-3 (Version None)
Quarter: 2010Q1

REPORT INFORMATION
  Report Type: 
  Country: None (occurrence: None)
  Receive Date: 20100124
  Receipt Date: 20091118
  Transmission Date: 20100710
  Serious: Yes (Hospitalization)
  Sender: FDA-Public Use
  Company Number: US-ALEXION-A200900992

PATIENT

DRUGS (16)
  1. SOLIRIS [Suspect]
     Indication: PROPHYLAXIS AGAINST TRANSPLANT REJECTION
     Dosage: 1200 MG X 2
     Route: 042
  2. SOLIRIS [Suspect]
     Dosage: 600 MG X 6
     Route: 042
  3. BACTRIM DS [Concomitant]
     Dosage: 160/800 MG, QD
     Route: 048
  4. CELLCEPT [Concomitant]
     Dosage: 750 MG, BID
  5. MULTIVITAMIN                       /00831701/ [Concomitant]
     Dosage: 1 TABLET
     Route: 048
  6. PREDNISONE [Concomitant]
     Dosage: 20 MG, QD
  7. PREDNISONE [Concomitant]
     Dosage: 5 MG, QD
  8. PROTONIX                           /01263201/ [Concomitant]
     Dosage: 40 MG, QD
  9. RESTASIS [Concomitant]
     Dosage: 1 DROP Q12 HOURS
     Route: 047
  10. ZOCOR [Concomitant]
     Dosage: 20 MG, QHS
     Route: 048
  11. TACROLIMUS [Concomitant]
     Dosage: 7 MG, BID
     Route: 048
  12. TAMIFLU [Concomitant]
     Dosage: 75 MG AS DIRECTED
  13. TEGRETOL [Concomitant]
     Dosage: 500 MG, BID
     Route: 048
  14. XALATAN [Concomitant]
     Dosage: 1 DROP QD
     Route: 047
  15. XANAX [Concomitant]
     Dosage: 0.5 MG, BID
     Route: 048
  16. ZOLOFT [Concomitant]
     Dosage: 100 MG, QD
     Route: 048

REACTIONS (4)
  - DIARRHOEA [None]
  - DYSPEPSIA [None]
  - NAUSEA [None]
  - VOMITING [None]
